FAERS Safety Report 8431670 (Version 6)
Quarter: 2018Q2

REPORT INFORMATION
  Report Type: Spontaneous
  Country: US (occurrence: US)
  Receive Date: 20120228
  Receipt Date: 20180607
  Transmission Date: 20180711
  Serious: Yes (Hospitalization, Other)
  Sender: FDA-Public Use
  Company Number: US-009507513-1202USA03892

PATIENT
  Sex: Female

DRUGS (7)
  1. NITRODERM [Concomitant]
     Active Substance: NITROGLYCERIN
     Route: 065
  2. VITAMINS (UNSPECIFIED) [Concomitant]
     Active Substance: VITAMINS
     Dosage: UNK
     Route: 065
     Dates: start: 2002
  3. LIPITOR [Concomitant]
     Active Substance: ATORVASTATIN CALCIUM
     Indication: HYPERCHOLESTEROLAEMIA
     Dosage: 10 MG, QM
     Route: 065
     Dates: start: 200109
  4. FOSAMAX [Suspect]
     Active Substance: ALENDRONATE SODIUM
     Indication: OSTEOPOROSIS POSTMENOPAUSAL
     Dosage: 70 MG QW
     Route: 048
     Dates: start: 20030724, end: 200508
  5. FOSAMAX PLUS D [Suspect]
     Active Substance: ALENDRONATE SODIUM\CHOLECALCIFEROL
     Indication: OSTEOPOROSIS POSTMENOPAUSAL
     Dosage: 70 MG/2800
     Route: 048
     Dates: start: 200511, end: 20100511
  6. ALENDRONATE SODIUM. [Suspect]
     Active Substance: ALENDRONATE SODIUM
     Indication: OSTEOPOROSIS POSTMENOPAUSAL
     Dosage: 70 MG, WEEKLY
     Route: 048
     Dates: start: 20100730
  7. NORVASC [Concomitant]
     Active Substance: AMLODIPINE BESYLATE
     Indication: HYPERTENSION
     Dosage: 2.5 MG, QD
     Route: 065

REACTIONS (29)
  - Femur fracture [Unknown]
  - Low turnover osteopathy [Unknown]
  - Musculoskeletal discomfort [Unknown]
  - Synovitis [Unknown]
  - Gait disturbance [Unknown]
  - Constipation [Unknown]
  - Femur fracture [Unknown]
  - Anaemia [Unknown]
  - Constipation [Unknown]
  - Myocardial infarction [Unknown]
  - Deep vein thrombosis [Unknown]
  - Osteoarthritis [Unknown]
  - QRS axis abnormal [Unknown]
  - Hypoaesthesia [Unknown]
  - Arthritis [Unknown]
  - Arthralgia [Unknown]
  - Supraventricular extrasystoles [Unknown]
  - Muscular weakness [Unknown]
  - Electrocardiogram ST-T change [Unknown]
  - Periarthritis [Unknown]
  - Flatulence [Unknown]
  - Blood calcium decreased [Unknown]
  - Arthropathy [Unknown]
  - Chest pain [Unknown]
  - Haemoglobin decreased [Unknown]
  - Incisional drainage [Unknown]
  - Joint noise [Unknown]
  - Limb deformity [Unknown]
  - Drug tolerance [Unknown]

NARRATIVE: CASE EVENT DATE: 20061008
